APPROVED DRUG PRODUCT: PRASUGREL HYDROCHLORIDE
Active Ingredient: PRASUGREL HYDROCHLORIDE
Strength: EQ 10MG BASE
Dosage Form/Route: TABLET;ORAL
Application: A213315 | Product #002 | TE Code: AB
Applicant: UNICHEM LABORATORIES LTD
Approved: Aug 28, 2023 | RLD: No | RS: No | Type: RX